FAERS Safety Report 4911465-0 (Version None)
Quarter: 2006Q1

REPORT INFORMATION
  Report Type: 
  Country: None (occurrence: None)
  Receive Date: 20060214
  Receipt Date: 20050303
  Transmission Date: 20060701
  Serious: Yes (Hospitalization, Disabling)
  Sender: FDA-Public Use
  Company Number: US-MERCK-0503USA00836

PATIENT
  Age: 58 Year
  Sex: Male
  Weight: 132 kg

DRUGS (2)
  1. VIOXX [Suspect]
     Indication: ARTHRITIS
     Route: 048
     Dates: start: 20000411, end: 20020409
  2. VIOXX [Suspect]
     Route: 048
     Dates: start: 20000127, end: 20000410

REACTIONS (5)
  - CEREBROVASCULAR ACCIDENT [None]
  - DIVERTICULUM [None]
  - HAEMORRHOIDS [None]
  - MYOCARDIAL INFARCTION [None]
  - SINUS DISORDER [None]
